FAERS Safety Report 20000849 (Version 1)
Quarter: 2021Q4

REPORT INFORMATION
  Report Type: Spontaneous
  Country: US (occurrence: US)
  Receive Date: 20211026
  Receipt Date: 20211026
  Transmission Date: 20220303
  Serious: Yes (Disabling)
  Sender: FDA-Public Use
  Company Number: None

PATIENT
  Age: 31 Year
  Sex: Female
  Weight: 74.25 kg

DRUGS (1)
  1. AJOVY [Suspect]
     Active Substance: FREMANEZUMAB-VFRM
     Indication: Migraine
     Dosage: ?          QUANTITY:1 INJECTION(S);OTHER FREQUENCY:EVERY 31 DAYS;
     Route: 058
     Dates: start: 20210331, end: 20211011

REACTIONS (2)
  - Oedema [None]
  - Weight increased [None]

NARRATIVE: CASE EVENT DATE: 20210331
